FAERS Safety Report 11419505 (Version 1)
Quarter: 2015Q3

REPORT INFORMATION
  Report Type: Spontaneous
  Country: US (occurrence: None)
  Receive Date: 20150825
  Receipt Date: 20150825
  Transmission Date: 20151125
  Serious: No
  Sender: FDA-Public Use
  Company Number: None

PATIENT
  Age: 62 Year
  Sex: Female
  Weight: 60.78 kg

DRUGS (5)
  1. CITALOPRAM [Suspect]
     Active Substance: CITALOPRAM HYDROBROMIDE
     Indication: CRYING
     Dates: start: 20150705, end: 20150725
  2. CITALOPRAM [Suspect]
     Active Substance: CITALOPRAM HYDROBROMIDE
     Indication: ANXIETY
     Dates: start: 20150705, end: 20150725
  3. CITALOPRAM [Suspect]
     Active Substance: CITALOPRAM HYDROBROMIDE
     Indication: FEELING GUILTY
     Dates: start: 20150705, end: 20150725
  4. GLUCASOMINE [Concomitant]
  5. MVI [Concomitant]
     Active Substance: VITAMINS

REACTIONS (6)
  - Product substitution issue [None]
  - Anxiety [None]
  - Product quality issue [None]
  - Diverticulitis [None]
  - Crying [None]
  - No therapeutic response [None]
